FAERS Safety Report 8773056 (Version 2)
Quarter: 2012Q4

REPORT INFORMATION
  Report Type: 
  Country: IN (occurrence: IN)
  Receive Date: 20120907
  Receipt Date: 20120907
  Transmission Date: 20130627
  Serious: Yes (Other)
  Sender: FDA-Public Use
  Company Number: IN-RANBAXY-2012R1-59699

PATIENT
  Age: 30 Year
  Sex: Male
  Weight: 58 kg

DRUGS (2)
  1. SPORIDEX [Suspect]
     Indication: PRODUCT USED FOR UNKNOWN INDICATION
     Dosage: UNK
     Route: 065
     Dates: start: 20120725
  2. ETROBAX [Suspect]
     Indication: INFLAMMATION
     Dosage: UNK
     Route: 065
     Dates: start: 20120725

REACTIONS (3)
  - Syncope [Recovering/Resolving]
  - Erythema [Recovering/Resolving]
  - Pruritus [Recovering/Resolving]
